FAERS Safety Report 9168101 (Version 1)
Quarter: 2013Q1

REPORT INFORMATION
  Report Type: Spontaneous
  Country: CO (occurrence: CO)
  Receive Date: 20130318
  Receipt Date: 20130318
  Transmission Date: 20140127
  Serious: Yes (Hospitalization)
  Sender: FDA-Public Use
  Company Number: CO-UCBSA-080722

PATIENT
  Age: 21 Year
  Sex: Female

DRUGS (2)
  1. CIMZIA [Suspect]
     Indication: RHEUMATOID ARTHRITIS
     Route: 058
     Dates: start: 20130106, end: 20130206
  2. CLARITROMYCINE [Concomitant]
     Dosage: 500 MG

REACTIONS (1)
  - Pneumonia [Unknown]
